FAERS Safety Report 21821414 (Version 2)
Quarter: 2023Q1

REPORT INFORMATION
  Report Type: Report from Study
  Country: GB (occurrence: GB)
  Receive Date: 20230105
  Receipt Date: 20230211
  Transmission Date: 20230417
  Serious: Yes (Hospitalization, Other)
  Sender: FDA-Public Use
  Company Number: GB-CELLTRION INC.-2022GB019233

PATIENT

DRUGS (2)
  1. BEVACIZUMAB [Suspect]
     Active Substance: BEVACIZUMAB
     Indication: Hepatocellular carcinoma
     Dosage: 900 MG
     Dates: start: 20221006
  2. ATEZOLIZUMAB [Suspect]
     Active Substance: ATEZOLIZUMAB
     Indication: Hepatocellular carcinoma
     Dosage: THE MOST RECEIVED DOSE OF STUDY DRUG WAS ADMINISTERED ON ON 06/OCT/2022 AT 1200 MG OF STUDY DRUG PRI
     Route: 042
     Dates: start: 20221006

REACTIONS (12)
  - Altered state of consciousness [Not Recovered/Not Resolved]
  - Acute kidney injury [Recovered/Resolved]
  - Fatigue [Unknown]
  - Somnolence [Not Recovered/Not Resolved]
  - Melaena [Unknown]
  - Nausea [Not Recovered/Not Resolved]
  - Asthenia [Unknown]
  - Vomiting [Unknown]
  - Diarrhoea [Unknown]
  - Decreased appetite [Unknown]
  - Lethargy [Unknown]
  - Off label use [Unknown]

NARRATIVE: CASE EVENT DATE: 20221014
